FAERS Safety Report 16534204 (Version 1)
Quarter: 2019Q3

REPORT INFORMATION
  Report Type: Spontaneous
  Country: US (occurrence: US)
  Receive Date: 20190704
  Receipt Date: 20190704
  Transmission Date: 20191004
  Serious: Yes (Other)
  Sender: FDA-Public Use
  Company Number: None

PATIENT
  Age: 37 Year
  Sex: Male
  Weight: 94.5 kg

DRUGS (2)
  1. KRATOM [Suspect]
     Active Substance: HERBALS\MITRAGYNINE
     Indication: DECREASED APPETITE
     Dosage: ?          QUANTITY:6 CAPSULE(S);?
     Route: 048
     Dates: start: 20190702, end: 20190702
  2. IBUPROFEN. [Concomitant]
     Active Substance: IBUPROFEN

REACTIONS (2)
  - Seizure [None]
  - Loss of consciousness [None]

NARRATIVE: CASE EVENT DATE: 20190702
